FAERS Safety Report 5248885-3 (Version None)
Quarter: 2007Q1

REPORT INFORMATION
  Report Type: 
  Country: None (occurrence: None)
  Receive Date: 20070228
  Receipt Date: 20060420
  Transmission Date: 20070707
  Serious: No
  Sender: FDA-Public Use
  Company Number: US-GLAXOSMITHKLINE-A0600352A

PATIENT
  Age: 69 Year
  Sex: Female

DRUGS (4)
  1. VALTREX [Suspect]
     Dosage: 2G TWICE PER DAY
     Route: 048
     Dates: start: 20060324
  2. LYSINE [Concomitant]
  3. ABREVA [Concomitant]
  4. L-LYSINE [Concomitant]
     Indication: SUPPLEMENTATION THERAPY
     Dosage: 500MG PER DAY

REACTIONS (1)
  - DRUG INEFFECTIVE [None]
